FAERS Safety Report 17665261 (Version 1)
Quarter: 2020Q2

REPORT INFORMATION
  Report Type: Report from Study
  Country: DE (occurrence: DE)
  Receive Date: 20200414
  Receipt Date: 20200414
  Transmission Date: 20200713
  Serious: Yes (Death, Disabling)
  Sender: FDA-Public Use
  Company Number: DE-MYLANLABS-2020M1037072

PATIENT

DRUGS (3)
  1. DIAZEPAM. [Suspect]
     Active Substance: DIAZEPAM
     Indication: DRUG THERAPY
     Dosage: 5 MILLIGRAM, QD
     Route: 065
  2. HALOPERIDOL. [Suspect]
     Active Substance: HALOPERIDOL
     Indication: DRUG THERAPY
     Dosage: 3 MILLIGRAM, QD
     Route: 065
  3. LORAZEPAM. [Suspect]
     Active Substance: LORAZEPAM
     Indication: DRUG THERAPY
     Dosage: 2 MILLIGRAM, QD
     Route: 065

REACTIONS (2)
  - Parkinsonism [Fatal]
  - Pneumonia [Fatal]
